FAERS Safety Report 6772292-5 (Version None)
Quarter: 2010Q2

REPORT INFORMATION
  Report Type: 
  Country: None (occurrence: None)
  Receive Date: 20100616
  Receipt Date: 20091228
  Transmission Date: 20101027
  Serious: No
  Sender: FDA-Public Use
  Company Number: US-ASTRAZENECA-2009SE33633

PATIENT
  Sex: Female

DRUGS (1)
  1. PULMICORT FLEXHALER [Suspect]
     Indication: ASTHMA
     Dosage: 3 SPRAYS QID FOR A TOTAL OF 12 APPLICATIONS
     Route: 055
     Dates: start: 20041201

REACTIONS (2)
  - OVERDOSE [None]
  - VITAMIN D DEFICIENCY [None]
